FAERS Safety Report 6001145-5 (Version None)
Quarter: 2008Q4

REPORT INFORMATION
  Report Type: 
  Country: None (occurrence: None)
  Receive Date: 20081215
  Receipt Date: 20071206
  Transmission Date: 20090506
  Serious: No
  Sender: FDA-Public Use
  Company Number: US-AMGEN-KDL249519

PATIENT
  Sex: Female
  Weight: 74.9 kg

DRUGS (1)
  1. ENBREL [Suspect]
     Indication: PSORIATIC ARTHROPATHY
     Route: 058
     Dates: start: 20060301

REACTIONS (9)
  - BURNING SENSATION [None]
  - FORMICATION [None]
  - HYPERHIDROSIS [None]
  - INJECTION SITE ERYTHEMA [None]
  - INJECTION SITE PRURITUS [None]
  - PARAESTHESIA [None]
  - PRURITUS GENERALISED [None]
  - RASH MACULAR [None]
  - RASH PRURITIC [None]
